FAERS Safety Report 4617527-X (Version None)
Quarter: 2005Q1

REPORT INFORMATION
  Report Type: 
  Country: None (occurrence: None)
  Receive Date: 20050324
  Receipt Date: 20050321
  Transmission Date: 20050727
  Serious: Yes (Other)
  Sender: FDA-Public Use
  Company Number: PHBS2005BE04067

PATIENT
  Age: 47 Year
  Sex: Female

DRUGS (10)
  1. SIRDALUD [Suspect]
     Indication: MULTIPLE SCLEROSIS
     Dosage: 8  PACKAGES OF 100 SIRDALUD 4 MG TABLETS
     Dates: start: 20041001, end: 20041203
  2. SIRDALUD [Suspect]
     Dosage: 32 PACKAGES OF 100 SIRDALUD 4 MG TABLETS
     Route: 065
     Dates: start: 20041203, end: 20050318
  3. METHADONE HCL [Suspect]
     Dosage: 10 X 60 TABLETS = 600 TABLETS
     Route: 065
  4. SERENASE [Suspect]
     Dosage: 3 X 50 TABLETS = 150 TABLETS
     Route: 065
  5. TEMGESIC [Suspect]
     Dosage: 50 DF, ONCE/SINGLE
     Route: 065
  6. RANITIDINE [Suspect]
     Dosage: 9 X 28 OR 56 TABLETS
     Route: 065
  7. AMOXICILLIN [Suspect]
     Dosage: 500 MG, ONCE/SINGLE
     Route: 065
  8. BRUFEN [Suspect]
     Dosage: 400 MG, ONCE/SINGLE
     Route: 065
  9. CIPROFLOXACIN [Suspect]
     Dosage: 3 X 20 TABLETS = 60 TABLETS
     Route: 065
  10. LAMISIL [Suspect]
     Dosage: 6 X 56 TABLETS = 336 TABLETS
     Route: 065

REACTIONS (2)
  - DRUG ABUSER [None]
  - MEDICATION ERROR [None]
